FAERS Safety Report 8101826-3 (Version None)
Quarter: 2012Q1

REPORT INFORMATION
  Report Type: 
  Country: None (occurrence: None)
  Receive Date: 20120131
  Receipt Date: 20120127
  Transmission Date: 20120608
  Serious: Yes (Death)
  Sender: FDA-Public Use
  Company Number: FR-ASTRAZENECA-2011SE77921

PATIENT
  Age: 15614 Day
  Sex: Male
  Weight: 111 kg

DRUGS (7)
  1. OXAZEPAM [Concomitant]
     Indication: ANXIOLYTIC THERAPY
     Route: 048
  2. QUETIAPINE FUMARATE [Suspect]
     Route: 048
     Dates: start: 20111124, end: 20111204
  3. VALPROIC ACID [Concomitant]
     Indication: AFFECTIVE DISORDER
     Route: 048
  4. ZOPICLONE [Concomitant]
     Indication: SEDATIVE THERAPY
     Route: 048
     Dates: start: 20110902
  5. QUETIAPINE FUMARATE [Suspect]
     Indication: SCHIZOPHRENIA
     Route: 048
     Dates: start: 20111116, end: 20111123
  6. LOXAPINE HCL [Concomitant]
     Indication: ANXIETY
     Route: 048
  7. RISPERDAL [Concomitant]
     Indication: SCHIZOPHRENIA

REACTIONS (1)
  - DEATH [None]
